FAERS Safety Report 8249928-5 (Version None)
Quarter: 2012Q2

REPORT INFORMATION
  Report Type: 
  Country: None (occurrence: None)
  Receive Date: 20120402
  Receipt Date: 20120323
  Transmission Date: 20120825
  Serious: Yes (Hospitalization)
  Sender: FDA-Public Use
  Company Number: FI-ASTRAZENECA-2012SE17762

PATIENT
  Age: 76 Year
  Sex: Female

DRUGS (18)
  1. PREDNISOLONE [Concomitant]
     Indication: SJOGREN'S SYNDROME
     Route: 048
  2. PREDNISOLONE [Concomitant]
     Route: 048
  3. PREDNISOLONE [Concomitant]
     Route: 048
  4. DOXIMYCIN [Concomitant]
     Dates: end: 20120212
  5. RAMIPRIL [Concomitant]
  6. PREDNISOLONE [Concomitant]
     Route: 048
  7. BEMETSON CREME [Concomitant]
     Indication: RASH
     Dosage: ONCE PER DAY
  8. CELECTOL [Concomitant]
  9. PREDNISOLONE [Concomitant]
     Route: 048
  10. BEMETSON CREME [Concomitant]
     Dosage: 2-3 TIMES PER WEEK
  11. LOCOIN CRELO [Concomitant]
     Indication: RASH
  12. AQUALAN L [Concomitant]
  13. VIMOVO [Suspect]
     Indication: PAIN
     Dosage: 1 DF, EVERY DAY
     Route: 048
     Dates: start: 20111231, end: 20120120
  14. CALCIUM CARBONATE [Concomitant]
     Dosage: 1X1
  15. RANITIDINE HCL [Concomitant]
     Indication: PROPHYLAXIS
  16. GEFILUS [Concomitant]
     Dosage: 1X3 DURING THE COURSE OF ANTIBIOTICS
  17. IMOVANE [Concomitant]
  18. ACETAMINOPHEN [Concomitant]
     Dosage: 1 X 3-1

REACTIONS (1)
  - CUTANEOUS LUPUS ERYTHEMATOSUS [None]
